FAERS Safety Report 5238870-X (Version None)
Quarter: 2007Q1

REPORT INFORMATION
  Report Type: 
  Country: None (occurrence: None)
  Receive Date: 20070215
  Receipt Date: 20070206
  Transmission Date: 20070707
  Serious: Yes (Other)
  Sender: FDA-Public Use
  Company Number: PH-PFIZER INC-2007010214

PATIENT
  Age: 68 Year
  Sex: Male

DRUGS (2)
  1. SULPERAZONE [Suspect]
     Indication: PNEUMONIA
  2. OMEPRAZOLE [Concomitant]

REACTIONS (2)
  - TACHYCARDIA [None]
  - URTICARIA GENERALISED [None]
